FAERS Safety Report 20258593 (Version 1)
Quarter: 2021Q4

REPORT INFORMATION
  Report Type: Spontaneous
  Country: NL (occurrence: NL)
  Receive Date: 20211230
  Receipt Date: 20211230
  Transmission Date: 20220303
  Serious: Yes (Life-Threatening, Hospitalization)
  Sender: FDA-Public Use
  Company Number: None

PATIENT
  Sex: Male

DRUGS (1)
  1. GABAPENTIN [Suspect]
     Active Substance: GABAPENTIN
     Indication: Epilepsy
     Dosage: 3DD, GABAPENTINE TABLET 800MG / BRAND NAME NOT SPECIFIED, THERAPY END DATE: ASKU, 800 MG
     Route: 065
     Dates: start: 202111

REACTIONS (1)
  - Hypoglycaemia [Unknown]
